APPROVED DRUG PRODUCT: GUANFACINE HYDROCHLORIDE
Active Ingredient: GUANFACINE HYDROCHLORIDE
Strength: EQ 2MG BASE
Dosage Form/Route: TABLET;ORAL
Application: A074762 | Product #002
Applicant: WATSON LABORATORIES INC
Approved: Jun 25, 1997 | RLD: No | RS: No | Type: DISCN